FAERS Safety Report 12108536 (Version 1)
Quarter: 2016Q1

REPORT INFORMATION
  Report Type: Spontaneous
  Country: RU (occurrence: RU)
  Receive Date: 20160224
  Receipt Date: 20160224
  Transmission Date: 20160526
  Serious: Yes (Death, Other)
  Sender: FDA-Public Use
  Company Number: RU-ASTRAZENECA-2016SE16754

PATIENT
  Age: 60 Year
  Sex: Female

DRUGS (2)
  1. BETALOC ZOK [Suspect]
     Active Substance: METOPROLOL SUCCINATE
     Indication: PAROXYSMAL ARRHYTHMIA
     Route: 048
  2. MILDRONATE [Concomitant]

REACTIONS (3)
  - Tachyarrhythmia [Recovered/Resolved]
  - Loss of consciousness [Recovered/Resolved]
  - Cerebrovascular accident [Fatal]
